FAERS Safety Report 5314021-8 (Version None)
Quarter: 2007Q2

REPORT INFORMATION
  Report Type: 
  Country: None (occurrence: None)
  Receive Date: 20070501
  Receipt Date: 20070420
  Transmission Date: 20071010
  Serious: Yes (Hospitalization)
  Sender: FDA-Public Use
  Company Number: US-ELI_LILLY_AND_COMPANY-US200704004898

PATIENT
  Age: 64 Year
  Sex: Female
  Weight: 88.888 kg

DRUGS (4)
  1. BYETTA [Suspect]
     Indication: DIABETES MELLITUS NON-INSULIN-DEPENDENT
     Dosage: 5 UG, 2/D
     Route: 058
     Dates: start: 20060401, end: 20060701
  2. BYETTA [Suspect]
     Dosage: 10 UG, 2/D
     Route: 058
     Dates: start: 20060701, end: 20070316
  3. GLUCOPHAGE [Concomitant]
     Dosage: UNK, UNKNOWN
  4. ACTOS [Concomitant]
     Dosage: UNK, UNKNOWN

REACTIONS (4)
  - GAIT DISTURBANCE [None]
  - KNEE ARTHROPLASTY [None]
  - PAIN [None]
  - STOMACH DISCOMFORT [None]
